FAERS Safety Report 7301478-6 (Version None)
Quarter: 2011Q1

REPORT INFORMATION
  Report Type: 
  Country: None (occurrence: None)
  Receive Date: 20110208
  Receipt Date: 20110126
  Transmission Date: 20110831
  Serious: Yes (Disabling)
  Sender: FDA-Public Use
  Company Number: IDA-00495

PATIENT
  Age: 42 Year
  Sex: Female

DRUGS (2)
  1. INDERAL [Suspect]
     Indication: HYPERTENSION
     Dosage: 40 MG ORAL FORMULATION: TABLET
     Route: 048
     Dates: start: 20100601
  2. INDERAL [Suspect]
     Indication: ARRHYTHMIA
     Dosage: 40 MG ORAL FORMULATION: TABLET
     Route: 048
     Dates: start: 20100601

REACTIONS (2)
  - PAIN [None]
  - FATIGUE [None]
